FAERS Safety Report 5021089-5 (Version None)
Quarter: 2006Q2

REPORT INFORMATION
  Report Type: 
  Country: None (occurrence: None)
  Receive Date: 20060606
  Receipt Date: 20060606
  Transmission Date: 20061013
  Serious: Yes (Death, Hospitalization)
  Sender: FDA-Public Use
  Company Number: None

PATIENT
  Sex: Male
  Weight: 92.5 kg

DRUGS (4)
  1. CYCLOSPORINE [Suspect]
     Indication: ACUTE MYELOID LEUKAEMIA
     Dosage: 4995 MG
     Dates: start: 20060419, end: 20060523
  2. CYTARABINE [Suspect]
     Dosage: 2996 MG
     Dates: start: 20060419, end: 20060523
  3. DAUNORUBICIN HCL [Suspect]
     Dosage: 288 MG
     Dates: start: 20060419, end: 20060523
  4. G-CSF (FILGRASTIM, AMGEN) [Suspect]
     Dosage: 8240 MG
     Dates: start: 20060502, end: 20060523

REACTIONS (3)
  - ENTEROCOCCAL BACTERAEMIA [None]
  - PANCYTOPENIA [None]
  - SHOCK [None]
